FAERS Safety Report 23069907 (Version 1)
Quarter: 2023Q4

REPORT INFORMATION
  Report Type: Spontaneous
  Country: CN (occurrence: CN)
  Receive Date: 20231016
  Receipt Date: 20231016
  Transmission Date: 20240110
  Serious: Yes (Other)
  Sender: FDA-Public Use
  Company Number: CN-PFIZER INC-PV202300166341

PATIENT
  Age: 21 Year
  Sex: Male
  Weight: 88 kg

DRUGS (3)
  1. EPIRUBICIN HYDROCHLORIDE [Suspect]
     Active Substance: EPIRUBICIN HYDROCHLORIDE
     Indication: Bone sarcoma
     Dosage: ADDED IN 0.9%NS 100ML
     Route: 041
     Dates: start: 20230905, end: 20230905
  2. CISPLATIN [Suspect]
     Active Substance: CISPLATIN
     Indication: Bone sarcoma
     Dosage: ADDED IN GNS 500ML
     Route: 041
     Dates: start: 20220906, end: 20230906
  3. DEXTROSE\SODIUM CHLORIDE [Concomitant]
     Active Substance: DEXTROSE\SODIUM CHLORIDE
     Indication: Vehicle solution use
     Dosage: 500 ML, 1X/DAY
     Route: 041
     Dates: start: 20230906, end: 20230906

REACTIONS (1)
  - Hepatic function abnormal [Recovering/Resolving]

NARRATIVE: CASE EVENT DATE: 20230908
